FAERS Safety Report 19029067 (Version 1)
Quarter: 2021Q1

REPORT INFORMATION
  Report Type: Spontaneous
  Country: US (occurrence: US)
  Receive Date: 20210318
  Receipt Date: 20210318
  Transmission Date: 20210420
  Serious: Yes (Death, Hospitalization)
  Sender: FDA-Public Use
  Company Number: US-TEVA-2021-US-1890372

PATIENT
  Age: 35 Year
  Sex: Female

DRUGS (2)
  1. CISPLATIN. [Concomitant]
     Active Substance: CISPLATIN
     Indication: OSTEOSARCOMA
     Dosage: RECEIVED 6 CYCLES
     Route: 065
  2. DOXORUBICIN [Suspect]
     Active Substance: DOXORUBICIN
     Indication: OSTEOSARCOMA
     Dosage: RECEIVED 6 CYCLES; RECEIVED A CUMULATIVE DOSE OF 450 MG/M?2 DOXORUBICIN OVER 9 MONTHS.
     Route: 065

REACTIONS (8)
  - Cardiac tamponade [Fatal]
  - Respiratory failure [Fatal]
  - Pericardial effusion [Fatal]
  - Cardiotoxicity [Fatal]
  - Cardiogenic shock [Fatal]
  - Acute respiratory failure [Fatal]
  - Cardiorenal syndrome [Fatal]
  - Haemodynamic instability [Fatal]
